FAERS Safety Report 4302937-0 (Version None)
Quarter: 2004Q1

REPORT INFORMATION
  Report Type: 
  Country: None (occurrence: None)
  Receive Date: 20040223
  Receipt Date: 20040223
  Transmission Date: 20041129
  Serious: Yes (Hospitalization, Disabling, Other)
  Sender: FDA-Public Use
  Company Number: None

PATIENT
  Age: 45 Year
  Sex: Male
  Weight: 63.5036 kg

DRUGS (2)
  1. LEVOFLOXACIN [Suspect]
     Indication: STEVENS-JOHNSON SYNDROME
  2. MORPHINE [Concomitant]

REACTIONS (7)
  - DEPRESSION [None]
  - HYPERSENSITIVITY [None]
  - NEURALGIA [None]
  - ORAL DISCOMFORT [None]
  - PENILE PAIN [None]
  - STEVENS-JOHNSON SYNDROME [None]
  - WEIGHT DECREASED [None]
